FAERS Safety Report 7749690-6 (Version None)
Quarter: 2011Q3

REPORT INFORMATION
  Report Type: 
  Country: None (occurrence: None)
  Receive Date: 20110914
  Receipt Date: 20110908
  Transmission Date: 20111222
  Serious: Yes (Other)
  Sender: FDA-Public Use
  Company Number: JP-ROCHE-798373

PATIENT
  Age: 68 Year
  Sex: Male

DRUGS (5)
  1. KYTRIL [Suspect]
     Dosage: FORM: INJECTION DAY1 AND DAY2-3 (EACH COURSE).
     Route: 042
     Dates: start: 20080902
  2. TAXOTERE [Suspect]
     Dosage: INJECTION. DOSAGE IS UNCERTAIN.
     Route: 041
     Dates: start: 20080902
  3. DECADRON [Suspect]
     Route: 042
     Dates: start: 20080902
  4. EFUDEX [Suspect]
     Dosage: DOSAGE IS UNCERTAIN.
     Route: 065
     Dates: start: 20080902
  5. CISPLATIN [Suspect]
     Dosage: INJECTION
     Route: 042
     Dates: start: 20080902

REACTIONS (8)
  - VOMITING [None]
  - HICCUPS [None]
  - FATIGUE [None]
  - NAUSEA [None]
  - CONSTIPATION [None]
  - DIARRHOEA [None]
  - BLOOD GLUCOSE INCREASED [None]
  - BLOOD UREA INCREASED [None]
